FAERS Safety Report 15238628 (Version 2)
Quarter: 2018Q4

REPORT INFORMATION
  Report Type: Spontaneous
  Country: US (occurrence: US)
  Receive Date: 20180803
  Receipt Date: 20181128
  Transmission Date: 20190204
  Serious: Yes (Hospitalization)
  Sender: FDA-Public Use
  Company Number: US-SA-2018SA120645

PATIENT
  Age: 16 Year
  Sex: Male

DRUGS (1)
  1. CEREZYME [Suspect]
     Active Substance: IMIGLUCERASE
     Indication: GAUCHER^S DISEASE
     Dosage: 3600 U QOW
     Route: 041
     Dates: start: 20120702

REACTIONS (6)
  - Joint dislocation [Unknown]
  - Fall [Unknown]
  - Incorrect dose administered [Unknown]
  - Humerus fracture [Unknown]
  - Pain [Unknown]
  - Foot fracture [Unknown]

NARRATIVE: CASE EVENT DATE: 20180309
